FAERS Safety Report 4996837-0 (Version None)
Quarter: 2006Q2

REPORT INFORMATION
  Report Type: 
  Country: None (occurrence: None)
  Receive Date: 20060509
  Receipt Date: 20060126
  Transmission Date: 20061013
  Serious: Yes (Hospitalization, Disabling, Other)
  Sender: FDA-Public Use
  Company Number: US-MERCK-0601USA03243

PATIENT
  Age: 58 Year
  Sex: Female
  Weight: 86 kg

DRUGS (4)
  1. VIOXX [Suspect]
     Indication: ARTHRITIS
     Route: 048
     Dates: start: 20021022, end: 20031201
  2. DIFLUCAN [Concomitant]
     Route: 065
  3. FAMOTIDINE [Concomitant]
     Route: 065
  4. TERAZOL 7 [Concomitant]
     Route: 065

REACTIONS (8)
  - ARTERIOSCLEROSIS [None]
  - BLOOD CHOLESTEROL ABNORMAL [None]
  - CARDIAC VALVE DISEASE [None]
  - CARDIOMYOPATHY [None]
  - CORONARY ARTERY DISEASE [None]
  - DIABETES MELLITUS NON-INSULIN-DEPENDENT [None]
  - HYPERTENSION [None]
  - MYOCARDIAL INFARCTION [None]
